FAERS Safety Report 7535438-7 (Version None)
Quarter: 2011Q2

REPORT INFORMATION
  Report Type: 
  Country: None (occurrence: None)
  Receive Date: 20110609
  Receipt Date: 20080603
  Transmission Date: 20111010
  Serious: Yes (Hospitalization)
  Sender: FDA-Public Use
  Company Number: PHHY2008JP03622

PATIENT
  Sex: Female

DRUGS (26)
  1. NOVORAPID [Concomitant]
     Dosage: 12 IU, UNK
     Route: 058
     Dates: start: 20050516
  2. NOVORAPID MIX [Concomitant]
     Dosage: 8 IU, UNK
     Route: 058
     Dates: start: 20050926
  3. GLYCORAN [Concomitant]
     Dosage: 1500 MG, UNK
     Route: 048
     Dates: start: 20040927, end: 20060915
  4. OLMESARTAN MEDOXOMIL [Concomitant]
     Dosage: 20 MG, UNK
     Route: 048
     Dates: start: 20050926
  5. SULFASALAZINE [Concomitant]
     Dosage: 1000 MG, UNK
     Route: 048
     Dates: start: 20040927
  6. NOVORAPID [Concomitant]
     Dosage: 15 IU, UNK
     Route: 058
     Dates: start: 20050516
  7. NOVORAPID [Concomitant]
     Dosage: 11 IU, UNK
     Route: 058
     Dates: start: 20050516
  8. NOVORAPID MIX [Concomitant]
     Dosage: 9 IU, UNK
     Route: 058
     Dates: start: 20050926
  9. NOVORAPID MIX [Concomitant]
     Dosage: 9 IU, UNK
     Route: 058
     Dates: start: 20050926
  10. SANDOSTATIN LAR [Suspect]
     Indication: ACROMEGALY
     Route: 030
     Dates: start: 20040927
  11. GLYCORAN [Concomitant]
     Dosage: 1000 MG, UNK
     Route: 048
     Dates: start: 20040927, end: 20060915
  12. NOVORAPID MIX [Concomitant]
     Dosage: 10 IU, UNK
     Route: 058
     Dates: start: 20050926
  13. NOVORAPID [Concomitant]
     Dosage: 16 IU, UNK
     Route: 058
     Dates: start: 20050516
  14. NOVORAPID [Concomitant]
     Dosage: 17 IU, UNK
     Route: 058
     Dates: start: 20050516
  15. CANDESARTAN CILEXETIL [Concomitant]
     Dosage: 8 MG, UNK
     Route: 048
     Dates: start: 20040927, end: 20050605
  16. NOVORAPID MIX [Concomitant]
     Dosage: 10 IU, UNK
     Route: 058
     Dates: start: 20050926
  17. NOVORAPID MIX [Concomitant]
     Dosage: 11 IU, UNK
     Route: 058
     Dates: start: 20050926
  18. NOVORAPID [Concomitant]
     Dosage: 14 IU, UNK
     Route: 058
     Dates: start: 20050516
  19. NOVORAPID [Concomitant]
     Dosage: 15 IU, UNK
     Route: 058
     Dates: start: 20050516
  20. PENFILL 30R [Concomitant]
     Dosage: 25 IU, UNK
     Route: 058
     Dates: start: 20040927
  21. GLYCORAN [Concomitant]
     Dosage: 500 MG, UNK
     Route: 048
     Dates: start: 20040927, end: 20060915
  22. NOVORAPID [Concomitant]
     Dosage: 10 IU, UNK
     Route: 058
     Dates: start: 20050516
  23. CANDESARTAN CILEXETIL [Concomitant]
     Dosage: 4 MG, UNK
     Route: 048
     Dates: start: 20040927, end: 20050605
  24. PENFILL 30R [Concomitant]
     Dosage: 9 IU, UNK
     Route: 058
     Dates: start: 20040927
  25. NOVORAPID [Concomitant]
     Dosage: 13 IU, UNK
     Route: 058
     Dates: start: 20050516
  26. METFORMIN HCL [Concomitant]
     Dosage: 1500 MG, UNK
     Route: 048
     Dates: start: 20050926

REACTIONS (1)
  - GASTRIC CANCER [None]
